FAERS Safety Report 9599113 (Version 1)
Quarter: 2013Q4

REPORT INFORMATION
  Report Type: Spontaneous
  Country: US (occurrence: US)
  Receive Date: 20131004
  Receipt Date: 20131004
  Transmission Date: 20140711
  Serious: No
  Sender: FDA-Public Use
  Company Number: US-AMGEN-USASP2013027471

PATIENT
  Age: 57 Year
  Sex: Female
  Weight: 79.37 kg

DRUGS (6)
  1. ENBREL [Suspect]
     Indication: PRODUCT USED FOR UNKNOWN INDICATION
     Dosage: 50 MG, QWK
     Route: 058
  2. PLAQUENIL                          /00072602/ [Concomitant]
     Dosage: 200 MG, UNK
  3. MELOXICAM [Concomitant]
     Dosage: 7.5 MG, UNK
  4. METHOTREXATE [Concomitant]
     Dosage: 2.5 MG, UNK
  5. MULTIVITAMINS, PLAIN [Concomitant]
     Dosage: UNK
  6. CALTRATE + D                       /07511201/ [Concomitant]
     Dosage: 600, UNK

REACTIONS (1)
  - Ingrowing nail [Unknown]
